FAERS Safety Report 23959450 (Version 1)
Quarter: 2024Q2

REPORT INFORMATION
  Report Type: Spontaneous
  Country: US (occurrence: US)
  Receive Date: 20240611
  Receipt Date: 20240611
  Transmission Date: 20240716
  Serious: No
  Sender: FDA-Public Use
  Company Number: US-GILEAD-2024-0676013

PATIENT
  Age: 64 Year
  Sex: Female

DRUGS (1)
  1. EPCLUSA [Suspect]
     Active Substance: SOFOSBUVIR\VELPATASVIR
     Indication: Product used for unknown indication
     Dosage: UNK
     Route: 065

REACTIONS (6)
  - Rash [Unknown]
  - Insomnia [Unknown]
  - Swelling face [Unknown]
  - Formication [Unknown]
  - Joint swelling [Not Recovered/Not Resolved]
  - Chest pain [Not Recovered/Not Resolved]
